FAERS Safety Report 5493660-8 (Version None)
Quarter: 2007Q4

REPORT INFORMATION
  Report Type: 
  Country: None (occurrence: None)
  Receive Date: 20071023
  Receipt Date: 20071012
  Transmission Date: 20080405
  Serious: No
  Sender: FDA-Public Use
  Company Number: US-ELI_LILLY_AND_COMPANY-US200710003247

PATIENT
  Sex: Female
  Weight: 190.2 kg

DRUGS (9)
  1. CYMBALTA [Suspect]
     Indication: CRYING
     Dosage: 30 MG, DAILY (1/D)
     Route: 048
     Dates: start: 20070512
  2. CYMBALTA [Suspect]
     Dosage: 60 MG, DAILY (1/D)
     Route: 048
     Dates: start: 20070526
  3. TOPROL-XL [Concomitant]
  4. DIOVAN [Concomitant]
  5. LEVOTHYROXINE SODIUM [Concomitant]
  6. MULTI-VITAMIN [Concomitant]
  7. VITAMIN D [Concomitant]
  8. VITAMIN B-12 [Concomitant]
  9. OCUVITE [Concomitant]

REACTIONS (11)
  - ANOREXIA [None]
  - DISTURBANCE IN ATTENTION [None]
  - DIZZINESS [None]
  - DYSGEUSIA [None]
  - EAR INFECTION [None]
  - FEELING ABNORMAL [None]
  - HEPATIC ENZYME INCREASED [None]
  - MEMORY IMPAIRMENT [None]
  - NAUSEA [None]
  - PAIN IN JAW [None]
  - TINNITUS [None]
